FAERS Safety Report 8618072-7 (Version None)
Quarter: 2012Q3

REPORT INFORMATION
  Report Type: 
  Country: None (occurrence: None)
  Receive Date: 20120824
  Receipt Date: 20120419
  Transmission Date: 20120928
  Serious: No
  Sender: FDA-Public Use
  Company Number: US-ASTRAZENECA-2012SE26154

PATIENT
  Age: 40 Year
  Sex: Female

DRUGS (3)
  1. ACYCLOVIR [Concomitant]
  2. SINGULAIR [Concomitant]
  3. SYMBICORT [Suspect]
     Dosage: UNKNOWN
     Route: 055

REACTIONS (2)
  - INTENTIONAL DRUG MISUSE [None]
  - MALAISE [None]
